FAERS Safety Report 6040998-1 (Version None)
Quarter: 2009Q1

REPORT INFORMATION
  Report Type: 
  Country: None (occurrence: None)
  Receive Date: 20090116
  Receipt Date: 20080723
  Transmission Date: 20090719
  Serious: No
  Sender: FDA-Public Use
  Company Number: US-BRISTOL-MYERS SQUIBB COMPANY-14274922

PATIENT
  Age: 41 Year
  Sex: Male
  Weight: 98 kg

DRUGS (6)
  1. ABILIFY [Suspect]
     Dates: start: 20080523
  2. CLOZARIL [Concomitant]
  3. PROVIGIL [Concomitant]
  4. LAMICTAL [Concomitant]
  5. PREVACID [Concomitant]
  6. MULTI-VITAMINS [Concomitant]

REACTIONS (1)
  - SOMNOLENCE [None]
